FAERS Safety Report 24140719 (Version 1)
Quarter: 2024Q3

REPORT INFORMATION
  Report Type: Spontaneous
  Country: IE (occurrence: None)
  Receive Date: 20240726
  Receipt Date: 20240726
  Transmission Date: 20241016
  Serious: Yes (Other)
  Sender: ASTRAZENECA
  Company Number: 2024A163889

PATIENT
  Age: 55 Year
  Sex: Male
  Weight: 86 kg

DRUGS (6)
  1. DAPAGLIFLOZIN [Suspect]
     Active Substance: DAPAGLIFLOZIN
     Indication: Diabetes mellitus
     Dosage: 10MGS10.0MG UNKNOWN
     Route: 048
     Dates: start: 20240221, end: 20240701
  2. LISINOPRIL (GENERIC) [Concomitant]
  3. CARDURA [Concomitant]
     Active Substance: DOXAZOSIN MESYLATE
  4. ASPIRIN [Concomitant]
     Active Substance: ASPIRIN
  5. METFORMIN HYDROCHLORIDE [Concomitant]
     Active Substance: METFORMIN HYDROCHLORIDE
  6. LERCANIDIPINE HYDROCHLORIDE [Concomitant]
     Active Substance: LERCANIDIPINE HYDROCHLORIDE

REACTIONS (3)
  - Fournier^s gangrene [Unknown]
  - Genital tract inflammation [Unknown]
  - Cellulitis of male external genital organ [Unknown]

NARRATIVE: CASE EVENT DATE: 20240630
